FAERS Safety Report 4349777-4 (Version None)
Quarter: 2004Q2

REPORT INFORMATION
  Report Type: 
  Country: None (occurrence: None)
  Receive Date: 20040428
  Receipt Date: 20040428
  Transmission Date: 20050107
  Serious: No
  Sender: FDA-Public Use
  Company Number: None

PATIENT

DRUGS (3)
  1. DURAGESIC [Suspect]
  2. DURAGESIC [Suspect]
  3. DURAGESIC [Suspect]

REACTIONS (6)
  - DRUG WITHDRAWAL SYNDROME [None]
  - HOT FLUSH [None]
  - HYPERHIDROSIS [None]
  - NAUSEA [None]
  - PHARMACEUTICAL PRODUCT COMPLAINT [None]
  - VOMITING [None]
